FAERS Safety Report 16526354 (Version 1)
Quarter: 2019Q3

REPORT INFORMATION
  Report Type: Spontaneous
  Country: IT (occurrence: IT)
  Receive Date: 20190703
  Receipt Date: 20190703
  Transmission Date: 20191004
  Serious: Yes (Other)
  Sender: FDA-Public Use
  Company Number: IT-ACCORD-126837

PATIENT
  Age: 77 Year
  Sex: Female
  Weight: 50 kg

DRUGS (3)
  1. CARBOPLATIN AHCL [Suspect]
     Active Substance: CARBOPLATIN
     Indication: BLADDER CANCER
     Route: 042
     Dates: start: 20190207, end: 20190228
  2. GEMCITABINE. [Suspect]
     Active Substance: GEMCITABINE
     Indication: BLADDER CANCER
     Route: 042
     Dates: start: 20190207, end: 20190228
  3. SEQUACOR [Concomitant]
     Active Substance: BISOPROLOL
     Indication: HYPERTENSION
     Route: 048

REACTIONS (3)
  - Neutropenia [Recovered/Resolved]
  - Off label use [Unknown]
  - Arthralgia [Recovered/Resolved]

NARRATIVE: CASE EVENT DATE: 20190307
